FAERS Safety Report 6830634-6 (Version None)
Quarter: 2010Q3

REPORT INFORMATION
  Report Type: 
  Country: None (occurrence: None)
  Receive Date: 20100709
  Receipt Date: 20100709
  Transmission Date: 20110219
  Serious: Yes (Hospitalization)
  Sender: FDA-Public Use
  Company Number: None

PATIENT
  Sex: Male
  Weight: 74.3899 kg

DRUGS (1)
  1. AVODART [Suspect]
     Indication: PROSTATIC DISORDER
     Dosage: 1 DAY 0.5
     Dates: start: 20090205, end: 20100205

REACTIONS (3)
  - BREAST MASS [None]
  - PAIN [None]
  - UNEVALUABLE EVENT [None]
